FAERS Safety Report 4672973-3 (Version None)
Quarter: 2005Q2

REPORT INFORMATION
  Report Type: 
  Country: None (occurrence: None)
  Receive Date: 20050524
  Receipt Date: 20050314
  Transmission Date: 20051028
  Serious: Yes (Death)
  Sender: FDA-Public Use
  Company Number: 2005SI001202

PATIENT
  Age: 39 Year
  Sex: Male
  Weight: 92.0802 kg

DRUGS (10)
  1. CLOZAPINE [Suspect]
     Indication: SCHIZOPHRENIA
     Dosage: 300 MG QAM PO; 500 MG HS PO
     Route: 048
     Dates: start: 20020101
  2. OMEPRAZOLE [Concomitant]
  3. RANITIDINE HYDROCHLORIDE [Concomitant]
  4. DOCUSATE SODIUM [Concomitant]
  5. FLUOXETINE HCL [Concomitant]
  6. OLANZAPINE [Concomitant]
  7. RISPERIDONE [Concomitant]
  8. BENZATROPINE MESILATE [Concomitant]
  9. MACROGOL [Concomitant]
  10. FIBER TAX [Concomitant]

REACTIONS (1)
  - CONVULSION [None]
